FAERS Safety Report 6763221-9 (Version None)
Quarter: 2010Q2

REPORT INFORMATION
  Report Type: 
  Country: None (occurrence: None)
  Receive Date: 20100609
  Receipt Date: 20100601
  Transmission Date: 20101027
  Serious: Yes (Other)
  Sender: FDA-Public Use
  Company Number: KR-GILEAD-E2B_00000737

PATIENT
  Age: 45 Year
  Sex: Male

DRUGS (2)
  1. HEPSERA [Suspect]
     Indication: DRUG USE FOR UNKNOWN INDICATION
     Route: 065
     Dates: start: 20090101
  2. ZEFFIX [Suspect]
     Indication: DRUG USE FOR UNKNOWN INDICATION
     Route: 065
     Dates: start: 19950101, end: 19970101

REACTIONS (3)
  - DRUG INEFFECTIVE [None]
  - HEADACHE [None]
  - THYROID CANCER [None]
